FAERS Safety Report 13009526 (Version 1)
Quarter: 2016Q4

REPORT INFORMATION
  Report Type: Spontaneous
  Country: FR (occurrence: FR)
  Receive Date: 20161208
  Receipt Date: 20161208
  Transmission Date: 20170207
  Serious: Yes (Hospitalization)
  Sender: FDA-Public Use
  Company Number: FR-ELI_LILLY_AND_COMPANY-FR201611009663

PATIENT
  Age: 55 Year
  Sex: Male

DRUGS (11)
  1. ALIMTA [Suspect]
     Active Substance: PEMETREXED DISODIUM
     Dosage: UNK UNK, CYCLICAL
     Route: 065
  2. ALIMTA [Suspect]
     Active Substance: PEMETREXED DISODIUM
     Dosage: 1000 MG, CYCLICAL
     Route: 065
     Dates: start: 20161007
  3. CISPLATINE [Suspect]
     Active Substance: CISPLATIN
     Indication: NEOPLASM MALIGNANT
     Dosage: 150 MG, CYCLICAL
     Route: 065
     Dates: start: 20160908
  4. CISPLATINE [Suspect]
     Active Substance: CISPLATIN
     Dosage: 150 MG, CYCLICAL
     Route: 065
     Dates: start: 20161007
  5. ALIMTA [Suspect]
     Active Substance: PEMETREXED DISODIUM
     Indication: NEOPLASM MALIGNANT
     Dosage: 1000 MG, CYCLICAL
     Route: 065
     Dates: start: 20160908
  6. BISOPROLOL [Concomitant]
     Active Substance: BISOPROLOL
     Dosage: 10 MG, QD
     Route: 065
  7. PRIMPERAN [Concomitant]
     Active Substance: METOCLOPRAMIDE HYDROCHLORIDE
     Indication: NAUSEA
     Dosage: 10 MG, TID
     Route: 065
  8. CISPLATINE [Suspect]
     Active Substance: CISPLATIN
     Dosage: UNK UNK, CYCLICAL
     Route: 065
  9. EMEND [Concomitant]
     Active Substance: APREPITANT
     Dosage: 80 MG, CYCLICAL
     Route: 065
  10. SPECIAFOLDINE [Concomitant]
     Active Substance: FOLIC ACID
     Indication: ANAEMIA
     Dosage: UNK, UNKNOWN
     Route: 065
  11. SOLUPRED                           /00016201/ [Concomitant]
     Active Substance: PREDNISOLONE

REACTIONS (4)
  - Anaemia [Unknown]
  - Thrombocytopenia [Unknown]
  - Leukopenia [Unknown]
  - Hepatocellular injury [Recovered/Resolved]

NARRATIVE: CASE EVENT DATE: 20160909
